FAERS Safety Report 21121131 (Version 1)
Quarter: 2022Q3

REPORT INFORMATION
  Report Type: Spontaneous
  Country: US (occurrence: US)
  Receive Date: 20220722
  Receipt Date: 20220722
  Transmission Date: 20221026
  Serious: No
  Sender: FDA-Public Use
  Company Number: US-PFIZER INC-PV202200026305

PATIENT
  Age: 69 Year
  Sex: Female
  Weight: 68.707 kg

DRUGS (6)
  1. SILDENAFIL CITRATE [Suspect]
     Active Substance: SILDENAFIL CITRATE
     Dosage: UNK
  2. TYVASO [Suspect]
     Active Substance: TREPROSTINIL
     Indication: Pulmonary arterial hypertension
     Dosage: UNK, INHALATION
     Dates: start: 20220601
  3. TYVASO [Suspect]
     Active Substance: TREPROSTINIL
     Dosage: 18-72 UG (3-12 BREATHS), INHALATION, 4X/DAY (QID)
     Dates: start: 202206
  4. TYVASO [Suspect]
     Active Substance: TREPROSTINIL
     Dosage: UNK, INHALATION
     Dates: start: 2022
  5. ELIQUIS [Concomitant]
     Active Substance: APIXABAN
     Dosage: UNK
  6. LETAIRIS [Concomitant]
     Active Substance: AMBRISENTAN
     Dosage: UNK

REACTIONS (5)
  - Dry mouth [Recovering/Resolving]
  - Dry throat [Not Recovered/Not Resolved]
  - Diarrhoea [Recovered/Resolved]
  - Palpitations [Unknown]
  - Blood pressure decreased [Unknown]

NARRATIVE: CASE EVENT DATE: 20220601
